FAERS Safety Report 8564988 (Version 2)
Quarter: 2013Q2

REPORT INFORMATION
  Report Type: Report from Study
  Country: US (occurrence: US)
  Receive Date: 20120516
  Receipt Date: 20130502
  Transmission Date: 20140414
  Serious: Yes (Hospitalization)
  Sender: FDA-Public Use
  Company Number: US-ALEXION-A201200307

PATIENT
  Sex: Female
  Weight: 68.9 kg

DRUGS (28)
  1. SOLIRIS [Suspect]
     Indication: HAEMOLYTIC URAEMIC SYNDROME
     Dosage: 900 MG, UNK
     Route: 042
     Dates: start: 20120131, end: 20120209
  2. SOLIRIS [Suspect]
     Dosage: 600 MG, UNK
     Route: 042
     Dates: start: 20120216, end: 20120223
  3. SOLIRIS [Suspect]
     Dosage: 900 MG, UNK
     Route: 042
     Dates: start: 20120301
  4. CALCIUM CARBONATE [Concomitant]
     Dosage: 1250 MG, TID
     Route: 048
  5. COREG [Concomitant]
     Dosage: 6.25 MG, BID
     Route: 048
  6. CYMBALTA [Concomitant]
     Dosage: 60 MG, QD
     Route: 048
  7. DAPTOMYCIN [Concomitant]
     Dosage: 4 MG/KG, QD
     Route: 042
  8. DIVALPROEX SODIUM [Concomitant]
     Dosage: 250 MG, 3 BID
     Route: 048
  9. MIRALAX [Concomitant]
     Dosage: UNK
  10. OMEPRAZOLE [Concomitant]
     Dosage: 20 MG, QD
     Route: 048
  11. PREMARIN [Concomitant]
     Dosage: 0.625 MG, QD
     Route: 048
  12. PROCARDIA XL [Concomitant]
     Dosage: 60 MG, ON DIALYSIS DAYS
     Route: 048
  13. REGLAN [Concomitant]
     Dosage: 5 MG, BEFORE MEALS + AT BEDTIME
     Route: 048
  14. ZANAFLEX [Concomitant]
     Dosage: 4 MG, TID
     Route: 048
  15. ACETAMINOPHEN [Concomitant]
     Dosage: 650 MG, BID
     Route: 048
  16. ALBUTEROL SULFATE [Concomitant]
     Dosage: 90 MCG, 2 INHALATIONS AS DIRECTED
     Route: 055
  17. AMBIEN [Concomitant]
     Indication: INSOMNIA
     Dosage: 5 MG, QHS PRN
     Route: 048
  18. ASPIRIN [Concomitant]
     Dosage: 81 MG, QD
     Route: 048
  19. FERROUS SULFATE [Concomitant]
     Dosage: 325 MG, TID
     Route: 048
  20. FOLIC ACID [Concomitant]
     Dosage: 1 MG, QD
     Route: 048
  21. GABAPENTIN [Concomitant]
     Dosage: 100 MG, TID
     Route: 048
  22. HYDRALAZINE HCL [Concomitant]
     Dosage: 100 MG, QD
     Route: 048
  23. LEVAQUIN [Concomitant]
     Dosage: 750 MG, QD
     Route: 048
  24. NEPHROCAPS [Concomitant]
     Dosage: 1 MG, QD
     Route: 048
  25. NORCO [Concomitant]
     Indication: PAIN
     Dosage: 10-325 MG, Q 4 HRS PRN
     Route: 048
  26. NORVASC [Concomitant]
     Dosage: 10 MG, QD
     Route: 048
  27. SEVELAMER CARBONATE [Concomitant]
     Dosage: 800 MG, TID
     Route: 048
  28. XANAX [Concomitant]
     Indication: ANXIETY
     Dosage: 0.5 MG, TID PRN
     Route: 048

REACTIONS (6)
  - Nausea [Not Recovered/Not Resolved]
  - Vomiting [Unknown]
  - Headache [Not Recovered/Not Resolved]
  - Migraine [Not Recovered/Not Resolved]
  - Blood pressure increased [Recovered/Resolved]
  - Fatigue [Not Recovered/Not Resolved]
